FAERS Safety Report 9928911 (Version 1)
Quarter: 2014Q1

REPORT INFORMATION
  Report Type: Spontaneous
  Country: FR (occurrence: FR)
  Receive Date: 20140227
  Receipt Date: 20140227
  Transmission Date: 20141002
  Serious: Yes (Hospitalization)
  Sender: FDA-Public Use
  Company Number: FR-PFIZER INC-2014051868

PATIENT
  Age: 93 Year
  Sex: Female

DRUGS (7)
  1. AMLOR [Suspect]
     Indication: HYPERTENSION
     Dosage: 5 MG, 1X/DAY
     Route: 048
  2. BISOPROLOL FUMARATE [Suspect]
     Indication: HYPERTENSION
     Dosage: 10 MG, 1X/DAY
     Route: 048
  3. NISISCO [Suspect]
     Indication: HYPERTENSION
     Dosage: 1 DF (80MG/12.5MG), 1X/DAY
     Route: 048
     Dates: end: 20121227
  4. METFORMIN [Concomitant]
     Indication: TYPE 2 DIABETES MELLITUS
     Dosage: 500 MG, 3X/DAY
     Route: 048
     Dates: end: 20121227
  5. GLICLAZIDE [Concomitant]
     Indication: TYPE 2 DIABETES MELLITUS
     Dosage: UNK
     Route: 048
     Dates: end: 20121227
  6. KARDEGIC [Concomitant]
     Dosage: 75 MG, 1X/DAY
     Route: 048
  7. AERIUS [Concomitant]
     Dosage: UNK
     Route: 048
     Dates: end: 20121227

REACTIONS (2)
  - Orthostatic hypotension [Unknown]
  - Confusional state [Unknown]
